FAERS Safety Report 6827103-6 (Version None)
Quarter: 2010Q3

REPORT INFORMATION
  Report Type: 
  Country: None (occurrence: None)
  Receive Date: 20100709
  Receipt Date: 20100629
  Transmission Date: 20110219
  Serious: Yes (Hospitalization)
  Sender: FDA-Public Use
  Company Number: US-ABBOTT-10P-163-0654735-00

PATIENT
  Sex: Male
  Weight: 95.34 kg

DRUGS (4)
  1. HUMIRA [Suspect]
     Indication: CROHN'S DISEASE
     Dates: start: 20070101, end: 20091203
  2. METHOTREXATE [Concomitant]
     Indication: CROHN'S DISEASE
  3. WELCHOL [Concomitant]
     Indication: CROHN'S DISEASE
  4. UNKNOWN VITAMINS [Concomitant]
     Indication: VITAMIN SUPPLEMENTATION

REACTIONS (4)
  - BACK PAIN [None]
  - DIARRHOEA [None]
  - DRUG INEFFECTIVE [None]
  - INTESTINAL OBSTRUCTION [None]
